FAERS Safety Report 8965123 (Version 1)
Quarter: 2012Q4

REPORT INFORMATION
  Report Type: Report from Study
  Country: BR (occurrence: BR)
  Receive Date: 20121213
  Receipt Date: 20121213
  Transmission Date: 20130627
  Serious: Yes (Hospitalization, Other)
  Sender: FDA-Public Use
  Company Number: BR-US-EMD SERONO, INC.-7181227

PATIENT
  Age: 23 Year
  Sex: Male

DRUGS (1)
  1. REBIF [Suspect]
     Indication: MULTIPLE SCLEROSIS
     Dates: start: 20120629

REACTIONS (4)
  - Fall [Unknown]
  - Contusion [Unknown]
  - Asthenia [Unknown]
  - Pneumonia [Unknown]
